FAERS Safety Report 6696734-9 (Version None)
Quarter: 2010Q2

REPORT INFORMATION
  Report Type: 
  Country: None (occurrence: None)
  Receive Date: 20100426
  Receipt Date: 20100416
  Transmission Date: 20101027
  Serious: Yes (Life-Threatening, Hospitalization)
  Sender: FDA-Public Use
  Company Number: FI-BAYER-201022720GPV

PATIENT
  Age: 32 Year
  Sex: Female

DRUGS (7)
  1. RANITIDINE [Suspect]
     Indication: PAIN
  2. ACETYLSALICYLIC ACID [Suspect]
     Indication: PLACENTAL DISORDER
  3. METAMIZOLE [Suspect]
     Indication: PAIN
  4. CEPHALOSPORIN [Suspect]
     Indication: ERYTHEMA MULTIFORME
     Dosage: UNIT DOSE: 500 MG
     Route: 048
  5. PREDNISOLONE [Concomitant]
     Indication: ARTHRALGIA
     Dosage: DOSE WAS GRADUALLY REDUCED TO 15 MG AFTER DELIVERY
  6. PREDNISOLONE [Concomitant]
  7. PREDNISOLONE [Concomitant]
     Dosage: DOSE INCREASED TO 30MG IN SECOND TRIMESTER

REACTIONS (2)
  - STEVENS-JOHNSON SYNDROME [None]
  - TOXIC EPIDERMAL NECROLYSIS [None]
